FAERS Safety Report 5233477-2 (Version None)
Quarter: 2007Q1

REPORT INFORMATION
  Report Type: 
  Country: None (occurrence: None)
  Receive Date: 20061208
  Receipt Date: 20040522
  Transmission Date: 20070707
  Serious: Yes (Other)
  Sender: FDA-Public Use
  Company Number: 2004UW09541

PATIENT
  Age: 78 Year
  Sex: Female
  Weight: 60.782 kg

DRUGS (4)
  1. CRESTOR [Suspect]
     Indication: BLOOD CHOLESTEROL INCREASED
     Dates: start: 20040301
  2. TOPROL-XL [Concomitant]
  3. NEXIUM [Concomitant]
  4. NORVASC [Concomitant]

REACTIONS (6)
  - GAIT DISTURBANCE [None]
  - MALAISE [None]
  - MUSCULOSKELETAL STIFFNESS [None]
  - MYALGIA [None]
  - PAIN [None]
  - VERTIGO [None]
